FAERS Safety Report 25525837 (Version 1)
Quarter: 2025Q3

REPORT INFORMATION
  Report Type: Spontaneous
  Country: US (occurrence: None)
  Receive Date: 20250707
  Receipt Date: 20250707
  Transmission Date: 20251020
  Serious: Yes (Hospitalization)
  Sender: FDA-CTU
  Company Number: None

PATIENT
  Age: 43 Year
  Sex: Female
  Weight: 66 kg

DRUGS (8)
  1. KESIMPTA [Suspect]
     Active Substance: OFATUMUMAB
     Indication: Multiple sclerosis
     Route: 058
     Dates: start: 20250528, end: 20250611
  2. BUPROPION [Concomitant]
     Active Substance: BUPROPION
  3. ACETAMINOPHEN [Concomitant]
     Active Substance: ACETAMINOPHEN
  4. GABAPENTIN [Concomitant]
     Active Substance: GABAPENTIN
  5. IBUPROFEN [Concomitant]
     Active Substance: IBUPROFEN
  6. MELATONIN [Concomitant]
     Active Substance: MELATONIN
  7. omega three [Concomitant]
  8. ONDANSETRON [Concomitant]
     Active Substance: ONDANSETRON

REACTIONS (11)
  - Pain [None]
  - Asthenia [None]
  - Nausea [None]
  - Diarrhoea [None]
  - Headache [None]
  - Pyrexia [None]
  - Neutropenia [None]
  - Leukopenia [None]
  - Thrombocytopenia [None]
  - Liver function test increased [None]
  - Therapy cessation [None]

NARRATIVE: CASE EVENT DATE: 20250611
